FAERS Safety Report 7234562-6 (Version None)
Quarter: 2011Q1

REPORT INFORMATION
  Report Type: 
  Country: None (occurrence: None)
  Receive Date: 20110119
  Receipt Date: 20110112
  Transmission Date: 20110831
  Serious: Yes (Other)
  Sender: FDA-Public Use
  Company Number: CO-AMGEN-COLSP2011002888

PATIENT

DRUGS (4)
  1. IBUPROFEN [Concomitant]
     Dosage: EVERY 8 HOURS
  2. ENBREL [Suspect]
     Indication: RHEUMATOID ARTHRITIS
     Dosage: 50 MG, WEEKLY
     Route: 058
     Dates: start: 20040101
  3. PREDNISOLONE [Concomitant]
     Dosage: EVERY 8 HOURS
  4. CALCIBON [Concomitant]

REACTIONS (4)
  - ARTHRITIS [None]
  - ANAEMIA [None]
  - HIP ARTHROPLASTY [None]
  - KNEE OPERATION [None]
